FAERS Safety Report 16916931 (Version 3)
Quarter: 2019Q4

REPORT INFORMATION
  Report Type: Spontaneous
  Country: FR (occurrence: FR)
  Receive Date: 20191015
  Receipt Date: 20191225
  Transmission Date: 20200122
  Serious: Yes (Hospitalization)
  Sender: FDA-Public Use
  Company Number: FR-TEVA-2019-FR-1120184

PATIENT
  Age: 70 Year
  Sex: Male
  Weight: 70 kg

DRUGS (2)
  1. DULOXETINE (CHLORHYDRATE DE) [Suspect]
     Active Substance: DULOXETINE
     Indication: DEPRESSED MOOD
     Dosage: 90 MG, 1 DAY
     Route: 048
     Dates: start: 20190828, end: 20190920
  2. ESCITALOPRAM [Suspect]
     Active Substance: ESCITALOPRAM OXALATE
     Indication: DEPRESSED MOOD
     Dosage: 10 MG, 1 DAY
     Route: 048
     Dates: start: 20190828, end: 20190902

REACTIONS (8)
  - Nausea [Unknown]
  - Vertigo [Recovered/Resolved]
  - Dysarthria [Unknown]
  - Orthostatic hypotension [Recovered/Resolved]
  - Tremor [Unknown]
  - Agitation [Unknown]
  - Confusional state [Unknown]
  - Hypertonia [Unknown]

NARRATIVE: CASE EVENT DATE: 201909
